FAERS Safety Report 6934372-0 (Version None)
Quarter: 2010Q3

REPORT INFORMATION
  Report Type: 
  Country: None (occurrence: None)
  Receive Date: 20100820
  Receipt Date: 20100816
  Transmission Date: 20110219
  Serious: Yes (Other)
  Sender: FDA-Public Use
  Company Number: A0876671A

PATIENT
  Age: 53 Year
  Sex: Female

DRUGS (2)
  1. PROMACTA [Suspect]
     Indication: IDIOPATHIC THROMBOCYTOPENIC PURPURA
     Dosage: 75MG PER DAY
     Dates: start: 20091223, end: 20100729
  2. CORTICOSTEROIDS [Concomitant]
     Indication: IDIOPATHIC THROMBOCYTOPENIC PURPURA

REACTIONS (4)
  - DRUG INEFFECTIVE [None]
  - EPISTAXIS [None]
  - HEPATIC ENZYME INCREASED [None]
  - TONGUE BLISTERING [None]
